FAERS Safety Report 10523458 (Version 2)
Quarter: 2015Q1

REPORT INFORMATION
  Report Type: Report from Study
  Country: BR (occurrence: BR)
  Receive Date: 20141017
  Receipt Date: 20150120
  Transmission Date: 20150720
  Serious: Yes (Other)
  Sender: FDA-Public Use
  Company Number: BR-AMGEN-BRACT2014080128

PATIENT

DRUGS (6)
  1. DISODIUM PHOSPHATE [Concomitant]
     Indication: NEUROPATHY PERIPHERAL
     Dosage: 1 DF, BID
     Route: 048
  2. CALCIUM [Concomitant]
     Active Substance: CALCIUM
     Indication: OSTEOPOROSIS
     Route: 048
  3. PROLIA [Suspect]
     Active Substance: DENOSUMAB
     Indication: OSTEOPOROSIS
     Dosage: UNK
     Route: 065
     Dates: start: 2011, end: 201307
  4. ATACAND [Concomitant]
     Active Substance: CANDESARTAN CILEXETIL
     Indication: BLOOD PRESSURE
     Dosage: 1 DF, UNK
     Route: 048
     Dates: start: 2007
  5. VASLIP                             /00848101/ [Concomitant]
     Indication: BLOOD CHOLESTEROL
     Dosage: 1 DF, UNK
     Route: 048
  6. BENERVA [Concomitant]
     Active Substance: THIAMINE
     Indication: NEUROPATHY PERIPHERAL
     Dosage: 1 DF, UNK
     Route: 048

REACTIONS (3)
  - Abdominal discomfort [Recovered/Resolved]
  - Drug administration error [Recovered/Resolved]
  - Parkinson^s disease [Not Recovered/Not Resolved]

NARRATIVE: CASE EVENT DATE: 201403
